FAERS Safety Report 5519617-6 (Version None)
Quarter: 2007Q4

REPORT INFORMATION
  Report Type: 
  Country: None (occurrence: None)
  Receive Date: 20071116
  Receipt Date: 20071108
  Transmission Date: 20080405
  Serious: Yes (Hospitalization)
  Sender: FDA-Public Use
  Company Number: GB-ROCHE-531145

PATIENT
  Age: 50 Year
  Sex: Male
  Weight: 82 kg

DRUGS (4)
  1. NAPROXEN [Suspect]
     Indication: INFLAMMATION
     Route: 048
     Dates: start: 20071015, end: 20071015
  2. PREGABALIN [Concomitant]
     Route: 048
     Dates: start: 20070314
  3. VIAGRA [Concomitant]
     Route: 048
     Dates: start: 20070308
  4. VOLTAREN [Concomitant]
     Route: 061
     Dates: start: 20070917

REACTIONS (5)
  - CONSTIPATION [None]
  - GROIN PAIN [None]
  - MUSCLE TIGHTNESS [None]
  - PAIN [None]
  - URINARY RETENTION [None]
